FAERS Safety Report 22526908 (Version 3)
Quarter: 2023Q2

REPORT INFORMATION
  Report Type: Report from Study
  Country: KR (occurrence: KR)
  Receive Date: 20230606
  Receipt Date: 20230623
  Transmission Date: 20230722
  Serious: Yes (Death, Hospitalization)
  Sender: FDA-Public Use
  Company Number: KR-DSJP-DSJ-2023-122164

PATIENT
  Age: 70 Year
  Sex: Female

DRUGS (11)
  1. AMLODIPINE\HYDROCHLOROTHIAZIDE\OLMESARTAN [Suspect]
     Active Substance: AMLODIPINE\HYDROCHLOROTHIAZIDE\OLMESARTAN
     Indication: Hypertension
     Dosage: 1 DF (10/40/12.5 MG), QD
     Route: 048
     Dates: start: 20220823, end: 20221225
  2. CARVEDILOL [Concomitant]
     Active Substance: CARVEDILOL
     Indication: Hypertension
     Dosage: 1 DF (12.5 MG), QD
     Route: 048
     Dates: start: 20220516, end: 20220822
  3. CARVEDILOL [Concomitant]
     Active Substance: CARVEDILOL
     Dosage: 1 DF (12.5 MG), QD
     Route: 048
     Dates: start: 20220823
  4. PLAVIX [Concomitant]
     Active Substance: CLOPIDOGREL BISULFATE
     Indication: Hypertension
     Dosage: 1 DF, QD
     Route: 048
     Dates: start: 20220516
  5. EVOPRIM [Concomitant]
     Indication: Prophylaxis
     Dosage: 2 DF, BID
     Route: 048
     Dates: start: 20220408, end: 20221226
  6. EVOPRIM [Concomitant]
     Indication: Atopy
  7. NALOXONE HYDROCHLORIDE\OXYCODONE HYDROCHLORIDE [Concomitant]
     Active Substance: NALOXONE HYDROCHLORIDE\OXYCODONE HYDROCHLORIDE
     Indication: Diabetic neuropathy
     Dosage: 1 DF (5/2.5 MG), BID
     Route: 048
     Dates: start: 20220720, end: 20221226
  8. TRILEPTAL [Concomitant]
     Active Substance: OXCARBAZEPINE
     Indication: Diabetic neuropathy
     Dosage: 1 DF(150 MG), BID
     Route: 048
     Dates: start: 20220525, end: 20221226
  9. LYRICA [Concomitant]
     Active Substance: PREGABALIN
     Indication: Diabetic neuropathy
     Dosage: 1 DF (75 MG), QD
     Route: 048
     Dates: start: 20220425, end: 20221226
  10. DEXID [Concomitant]
     Indication: Diabetic neuropathy
     Dosage: 1 DF (480 MG), QD
     Route: 048
     Dates: start: 20220408, end: 20221226
  11. BECOM [CALCIUM PANTOTHENATE;CYANOCOBALAMIN;NICOTINAMIDE;PYRIDOXINE HYD [Concomitant]
     Indication: Vitamin supplementation
     Dosage: 1 DF, QD
     Route: 048
     Dates: start: 20220408, end: 20221226

REACTIONS (2)
  - Acute kidney injury [Fatal]
  - Asphyxia [Fatal]

NARRATIVE: CASE EVENT DATE: 20221223
